FAERS Safety Report 8387444-0 (Version None)
Quarter: 2012Q2

REPORT INFORMATION
  Report Type: 
  Country: None (occurrence: None)
  Receive Date: 20120525
  Receipt Date: 20120518
  Transmission Date: 20120825
  Serious: Yes (Hospitalization, Other)
  Sender: FDA-Public Use
  Company Number: PHFR2012GB001781

PATIENT
  Sex: Male
  Weight: 77.119 kg

DRUGS (7)
  1. AMISULPRIDE [Concomitant]
  2. PENICILLIN V [Concomitant]
  3. FERROUS SULFATE TAB [Concomitant]
  4. DIAZEPAM [Concomitant]
  5. SERTRALINE HYDROCHLORIDE [Concomitant]
  6. CLOZARIL [Suspect]
     Indication: SCHIZOPHRENIA
     Dosage: 150 MG
     Route: 048
     Dates: start: 20030131, end: 20120317
  7. CLOZARIL [Suspect]
     Route: 048
     Dates: start: 20120423

REACTIONS (3)
  - HAEMOGLOBIN DECREASED [None]
  - FALL [None]
  - PLATELET COUNT INCREASED [None]
